FAERS Safety Report 9625558 (Version 2)
Quarter: 2014Q2

REPORT INFORMATION
  Report Type: Spontaneous
  Country: DE (occurrence: DE)
  Receive Date: 20131016
  Receipt Date: 20140409
  Transmission Date: 20141212
  Serious: Yes (Other)
  Sender: FDA-Public Use
  Company Number: DE-AMGEN-DEUSP2013072676

PATIENT
  Age: 50 Year
  Sex: Female

DRUGS (4)
  1. ENBREL [Suspect]
     Indication: ANKYLOSING SPONDYLITIS
     Dosage: 50 MG, WEEKLY
     Route: 058
     Dates: start: 20130401, end: 20140129
  2. MORPHINE [Concomitant]
     Dosage: UNK
  3. CORTISON [Concomitant]
     Dosage: 5 MG, DAILY
  4. IBUPROFEN [Concomitant]
     Dosage: UNK

REACTIONS (1)
  - Ankylosing spondylitis [Recovered/Resolved]
